FAERS Safety Report 8920722 (Version 1)
Quarter: 2012Q4

REPORT INFORMATION
  Report Type: 
  Country: BR (occurrence: BR)
  Receive Date: 20121122
  Receipt Date: 20121122
  Transmission Date: 20130627
  Serious: Yes (Other)
  Sender: FDA-Public Use
  Company Number: BR-009507513-1211BRA009034

PATIENT
  Sex: Male
  Weight: 86 kg

DRUGS (10)
  1. AFRIN [Suspect]
     Dosage: UNK
     Route: 045
  2. AFRIN [Suspect]
     Dosage: UNK
     Route: 047
  3. AFRIN [Suspect]
     Dosage: UNK
     Route: 045
  4. DRAMIN B6 [Concomitant]
     Indication: DIZZINESS
     Dosage: UNK, prn
  5. DRAMIN B6 [Concomitant]
     Indication: TINNITUS
  6. HIGROTON [Concomitant]
     Indication: DIURETIC THERAPY
     Dosage: 25 mg, qd
  7. ZYLORIC [Concomitant]
     Indication: BLOOD URIC ACID INCREASED
     Dosage: 100 mg, qd
  8. HISTAMINE PHOSPHATE [Concomitant]
     Indication: HYPERSENSITIVITY
     Dosage: UNK, prn
  9. NIMESULIDE [Concomitant]
     Indication: MYALGIA
     Dosage: UNK, prn
  10. LUFTAL [Concomitant]
     Indication: DYSPEPSIA
     Dosage: UNK, prn

REACTIONS (4)
  - Myocardial infarction [Unknown]
  - Nasal discomfort [Recovered/Resolved]
  - Drug administration error [Unknown]
  - Insomnia [Unknown]
